FAERS Safety Report 7684143-5 (Version None)
Quarter: 2011Q3

REPORT INFORMATION
  Report Type: 
  Country: None (occurrence: None)
  Receive Date: 20110815
  Receipt Date: 20110802
  Transmission Date: 20111222
  Serious: No
  Sender: FDA-Public Use
  Company Number: US-BAYER-2011-054479

PATIENT
  Age: 29 Year
  Sex: Male

DRUGS (2)
  1. BETASERON [Suspect]
     Indication: MULTIPLE SCLEROSIS
     Dosage: 8 MIU, QOD
     Route: 058
     Dates: start: 20110613
  2. ALEVE [Concomitant]

REACTIONS (4)
  - DEPRESSION [None]
  - SOCIAL AVOIDANT BEHAVIOUR [None]
  - DECREASED APPETITE [None]
  - DEPRESSED MOOD [None]
